FAERS Safety Report 9461815 (Version 1)
Quarter: 2013Q3

REPORT INFORMATION
  Report Type: Spontaneous
  Country: US (occurrence: US)
  Receive Date: 20130816
  Receipt Date: 20130816
  Transmission Date: 20140515
  Serious: No
  Sender: FDA-Public Use
  Company Number: US-009507513-1308USA005368

PATIENT
  Age: 53 Year
  Sex: Male

DRUGS (1)
  1. LIPTRUZET [Suspect]
     Indication: HYPERLIPIDAEMIA
     Dosage: UNK, QD^ STRENGTH-10/10 MG
     Route: 048
     Dates: start: 201307, end: 20130807

REACTIONS (1)
  - Myalgia [Recovering/Resolving]
